FAERS Safety Report 23687413 (Version 1)
Quarter: 2024Q1

REPORT INFORMATION
  Report Type: Spontaneous
  Country: CN (occurrence: CN)
  Receive Date: 20240329
  Receipt Date: 20240329
  Transmission Date: 20240410
  Serious: Yes (Other)
  Sender: FDA-Public Use
  Company Number: CN-009507513-2403CHN007789

PATIENT
  Age: 38 Year
  Sex: Male
  Weight: 77 kg

DRUGS (1)
  1. CILASTATIN SODIUM\IMIPENEM [Suspect]
     Active Substance: CILASTATIN SODIUM\IMIPENEM
     Indication: Agranulocytosis
     Dosage: 1 GRAM, TID
     Route: 041
     Dates: start: 20240315, end: 20240318

REACTIONS (4)
  - Loss of consciousness [Recovering/Resolving]
  - Pyrexia [Unknown]
  - Oliguria [Unknown]
  - Product use in unapproved indication [Unknown]

NARRATIVE: CASE EVENT DATE: 20240315
